FAERS Safety Report 8922013 (Version 1)
Quarter: 2012Q4

REPORT INFORMATION
  Report Type: Spontaneous
  Country: US (occurrence: None)
  Receive Date: 20121120
  Receipt Date: 20121120
  Transmission Date: 20130627
  Serious: Yes (Other)
  Sender: FDA-Public Use
  Company Number: None

PATIENT
  Age: 26 Year
  Sex: Female
  Weight: 43.09 kg

DRUGS (1)
  1. BENTYL [Suspect]
     Indication: IRRITABLE BOWEL SYNDROME
     Dates: start: 20120909, end: 20120913

REACTIONS (13)
  - Panic attack [None]
  - Paranoia [None]
  - Heart rate increased [None]
  - Thinking abnormal [None]
  - Hot flush [None]
  - Night sweats [None]
  - Dizziness [None]
  - Middle insomnia [None]
  - Vision blurred [None]
  - Confusional state [None]
  - Obsessive-compulsive disorder [None]
  - Paraesthesia [None]
  - Feeling abnormal [None]
